FAERS Safety Report 11991596 (Version 1)
Quarter: 2016Q1

REPORT INFORMATION
  Report Type: Spontaneous
  Country: US (occurrence: None)
  Receive Date: 20160202
  Receipt Date: 20160202
  Transmission Date: 20160526
  Serious: Yes (Life-Threatening, Hospitalization, Disabling)
  Sender: FDA-Public Use
  Company Number: None

PATIENT
  Age: 62 Year
  Sex: Female
  Weight: 77.11 kg

DRUGS (22)
  1. DEXILANT [Concomitant]
     Active Substance: DEXLANSOPRAZOLE
  2. MAGNESIUM [Concomitant]
     Active Substance: MAGNESIUM
  3. OXYCODONE [Concomitant]
     Active Substance: OXYCODONE
  4. CANE [Concomitant]
  5. SIDE HANDLES FOR TOILET [Concomitant]
  6. CALCIUM [Concomitant]
     Active Substance: CALCIUM
  7. ROLLATOR [Concomitant]
  8. CRESTOR [Concomitant]
     Active Substance: ROSUVASTATIN CALCIUM
  9. PREMARIN [Concomitant]
     Active Substance: ESTROGENS, CONJUGATED
  10. LASIX [Concomitant]
     Active Substance: FUROSEMIDE
  11. FOSAMAX [Suspect]
     Active Substance: ALENDRONATE SODIUM
     Indication: OSTEOPENIA
     Dosage: 70 MG WEEKLY WEEKLY, IN AM BEFO TAKEN BY MOUTH
     Route: 048
  12. PROGRAF [Concomitant]
     Active Substance: TACROLIMUS\TACROLIMUS ANHYDROUS
  13. ALLOPURINOL. [Concomitant]
     Active Substance: ALLOPURINOL
  14. FLUCONAZOLE. [Concomitant]
     Active Substance: FLUCONAZOLE
  15. VITAMIN D [Concomitant]
     Active Substance: CHOLECALCIFEROL
  16. SAFETY GRAB BARS PLACED IN SHOWER [Concomitant]
  17. FLAXSEED [Concomitant]
     Active Substance: FLAX SEED
  18. FISH OIL [Concomitant]
     Active Substance: FISH OIL
  19. DAILY VITAMINS [Concomitant]
  20. SHOWER CHAIR [Concomitant]
  21. LISINOPRIL. [Concomitant]
     Active Substance: LISINOPRIL
  22. CELLCEPT [Concomitant]
     Active Substance: MYCOPHENOLATE MOFETIL\MYCOPHENOLATE MOFETIL HYDROCHLORIDE

REACTIONS (3)
  - Fat embolism [None]
  - Femur fracture [None]
  - Pulmonary embolism [None]

NARRATIVE: CASE EVENT DATE: 20150904
